FAERS Safety Report 5802246-4 (Version None)
Quarter: 2008Q3

REPORT INFORMATION
  Report Type: 
  Country: None (occurrence: None)
  Receive Date: 20080707
  Receipt Date: 20080625
  Transmission Date: 20090109
  Serious: Yes (Other)
  Sender: FDA-Public Use
  Company Number: GB-PFIZER INC-2008053952

PATIENT
  Sex: Male

DRUGS (4)
  1. CELSENTRI [Suspect]
     Route: 048
  2. TRUVADA [Concomitant]
     Route: 048
  3. RALTEGRAVIR [Concomitant]
  4. NEVIRAPINE [Concomitant]
     Route: 048

REACTIONS (1)
  - RECTAL CANCER [None]
